FAERS Safety Report 6083806-5 (Version None)
Quarter: 2009Q1

REPORT INFORMATION
  Report Type: 
  Country: None (occurrence: None)
  Receive Date: 20090217
  Receipt Date: 20090217
  Transmission Date: 20090719
  Serious: Yes (Other)
  Sender: FDA-Public Use
  Company Number: None

PATIENT
  Age: 21 Year
  Sex: Male

DRUGS (4)
  1. LORAZEPAM [Suspect]
     Indication: ANXIETY
     Dosage: 2MG QID PO
     Route: 048
     Dates: start: 20020612
  2. LORAZEPAM [Suspect]
     Indication: CEREBROVASCULAR ACCIDENT
     Dosage: 2MG QID PO
     Route: 048
     Dates: start: 20020612
  3. LORAZEPAM [Suspect]
     Indication: DEPRESSION
     Dosage: 2MG QID PO
     Route: 048
     Dates: start: 20020612
  4. ZOLOFT [Concomitant]

REACTIONS (3)
  - ANXIETY [None]
  - THERAPEUTIC RESPONSE UNEXPECTED WITH DRUG SUBSTITUTION [None]
  - TREMOR [None]
